FAERS Safety Report 10456804 (Version 2)
Quarter: 2014Q3

REPORT INFORMATION
  Report Type: Spontaneous
  Country: US (occurrence: US)
  Receive Date: 20140916
  Receipt Date: 20140923
  Transmission Date: 20150326
  Serious: Yes (Other)
  Sender: FDA-Public Use
  Company Number: PHEH2014US018357

PATIENT
  Age: 50 Year
  Sex: Female
  Weight: 48.35 kg

DRUGS (10)
  1. ATENOLOL. [Concomitant]
     Active Substance: ATENOLOL
     Dosage: 12.5 MG, BID
     Route: 048
     Dates: start: 20120727, end: 20140108
  2. LISINOPRIL. [Concomitant]
     Active Substance: LISINOPRIL
     Dosage: 10 MG, BID
     Route: 048
     Dates: start: 20120509, end: 20140604
  3. TYLENOL [Concomitant]
     Active Substance: ACETAMINOPHEN
     Indication: ARTHRALGIA
     Dosage: 2 DF, PRN
     Route: 048
     Dates: start: 20110316
  4. VITAMIN D [Concomitant]
     Active Substance: CHOLECALCIFEROL
     Dosage: 2000 U, QD
     Route: 048
     Dates: start: 20110316
  5. BACLOFEN. [Concomitant]
     Active Substance: BACLOFEN
     Dosage: 1 DF, TID
     Route: 048
     Dates: start: 20110116, end: 20140117
  6. ABTEI BIOTIN [Concomitant]
     Dosage: 1 DF, QD
     Route: 048
     Dates: start: 20130426
  7. GILENYA [Suspect]
     Active Substance: FINGOLIMOD HYDROCHLORIDE
     Indication: RELAPSING-REMITTING MULTIPLE SCLEROSIS
     Dosage: 0.5 MG, QD
     Route: 048
     Dates: start: 20110426
  8. ADVIL [Concomitant]
     Active Substance: IBUPROFEN
     Dosage: 2 DF, PRN
     Route: 048
     Dates: start: 20121203
  9. CALCIUM +D                         /00944201/ [Concomitant]
     Active Substance: CALCIUM\VITAMIN D
     Dosage: UNK UKN, UNK
     Dates: start: 20101019
  10. ADVIL [Concomitant]
     Active Substance: IBUPROFEN
     Dosage: 2 DF, TID
     Route: 048
     Dates: start: 20121203

REACTIONS (7)
  - Urinary incontinence [Unknown]
  - Muscular weakness [Unknown]
  - Pyogenic granuloma [Unknown]
  - Haemangioma of skin [Unknown]
  - Multiple sclerosis [Unknown]
  - Gait disturbance [Unknown]
  - Squamous cell carcinoma [Recovered/Resolved]

NARRATIVE: CASE EVENT DATE: 20140529
